FAERS Safety Report 25127970 (Version 2)
Quarter: 2025Q3

REPORT INFORMATION
  Report Type: Spontaneous
  Country: EU (occurrence: EU)
  Receive Date: 20250327
  Receipt Date: 20250810
  Transmission Date: 20251021
  Serious: Yes (Hospitalization, Other)
  Sender: ALEXION PHARMACEUTICALS
  Company Number: EU-AstraZeneca-CH-00831896AM

PATIENT
  Sex: Male

DRUGS (1)
  1. DAPAGLIFLOZIN [Suspect]
     Active Substance: DAPAGLIFLOZIN
     Route: 065

REACTIONS (9)
  - Urinary tract infection [Recovered/Resolved]
  - Malaise [Unknown]
  - Pyrexia [Unknown]
  - Pulmonary oedema [Unknown]
  - Renal failure [Unknown]
  - Cardiac failure [Unknown]
  - Gallbladder disorder [Unknown]
  - COVID-19 [Unknown]
  - Loss of personal independence in daily activities [Unknown]
